FAERS Safety Report 23723165 (Version 1)
Quarter: 2024Q2

REPORT INFORMATION
  Report Type: Spontaneous
  Country: US (occurrence: None)
  Receive Date: 20240409
  Receipt Date: 20240409
  Transmission Date: 20240716
  Serious: No
  Sender: FDA-Public Use
  Company Number: None

PATIENT

DRUGS (4)
  1. ESCITALOPRAM OXALATE [Suspect]
     Active Substance: ESCITALOPRAM OXALATE
  2. ESCITALOPRAM OXALATE [Suspect]
     Active Substance: ESCITALOPRAM OXALATE
  3. MIRTAZAPINE [Suspect]
     Active Substance: MIRTAZAPINE
  4. MIRTAZAPINE [Suspect]
     Active Substance: MIRTAZAPINE

REACTIONS (5)
  - Product dispensing error [None]
  - Incorrect dose administered [None]
  - Product communication issue [None]
  - Transcription medication error [None]
  - Product confusion [None]
